FAERS Safety Report 8117262-X (Version None)
Quarter: 2012Q1

REPORT INFORMATION
  Report Type: 
  Country: None (occurrence: None)
  Receive Date: 20120206
  Receipt Date: 20120130
  Transmission Date: 20120608
  Serious: Yes (Disabling, Other)
  Sender: FDA-Public Use
  Company Number: US-MERCK-1104USA03000

PATIENT
  Age: 27 Year
  Sex: Male
  Weight: 84 kg

DRUGS (3)
  1. PROPECIA [Suspect]
     Indication: ANDROGENETIC ALOPECIA
     Route: 048
     Dates: start: 20090702, end: 20100101
  2. PROSCAR [Suspect]
     Indication: ALOPECIA
     Route: 048
     Dates: start: 20090702, end: 20100101
  3. PROPECIA [Suspect]
     Route: 048

REACTIONS (10)
  - ADENOMA BENIGN [None]
  - ORGASMIC SENSATION DECREASED [None]
  - DEAFNESS NEUROSENSORY [None]
  - INTENTIONAL DRUG MISUSE [None]
  - ERECTILE DYSFUNCTION [None]
  - ANXIETY [None]
  - EMOTIONAL DISTRESS [None]
  - WRONG TECHNIQUE IN DRUG USAGE PROCESS [None]
  - TINNITUS [None]
  - SEROMA [None]
